FAERS Safety Report 18949483 (Version 1)
Quarter: 2021Q1

REPORT INFORMATION
  Report Type: Spontaneous
  Country: US (occurrence: US)
  Receive Date: 20210227
  Receipt Date: 20210227
  Transmission Date: 20210420
  Serious: No
  Sender: FDA-Public Use
  Company Number: US-ROCHE-2610890

PATIENT
  Sex: Female

DRUGS (1)
  1. XOLAIR [Suspect]
     Active Substance: OMALIZUMAB
     Indication: INTENTIONAL PRODUCT USE ISSUE
     Route: 058

REACTIONS (5)
  - Medication error [Unknown]
  - Intentional product misuse [Unknown]
  - Off label use [Unknown]
  - No adverse event [Unknown]
  - Syringe issue [Unknown]
